FAERS Safety Report 17478692 (Version 1)
Quarter: 2020Q1

REPORT INFORMATION
  Report Type: Spontaneous
  Country: US (occurrence: US)
  Receive Date: 20200229
  Receipt Date: 20200229
  Transmission Date: 20200409
  Serious: Yes (Hospitalization)
  Sender: FDA-Public Use
  Company Number: US-ROCHE-2558938

PATIENT
  Age: 77 Year
  Sex: Female

DRUGS (7)
  1. CARVEDILOL. [Concomitant]
     Active Substance: CARVEDILOL
  2. DILTIAZEM. [Concomitant]
     Active Substance: DILTIAZEM
  3. SIMVASTATIN. [Concomitant]
     Active Substance: SIMVASTATIN
  4. ELIQUIS [Concomitant]
     Active Substance: APIXABAN
  5. OMEPRAZOLE. [Concomitant]
     Active Substance: OMEPRAZOLE
  6. ESBRIET [Suspect]
     Active Substance: PIRFENIDONE
     Indication: IDIOPATHIC PULMONARY FIBROSIS
     Dosage: THREE TIMES A DAY; ONGOING: YES
     Route: 048
     Dates: start: 20191126
  7. FUROSEMIDE. [Concomitant]
     Active Substance: FUROSEMIDE

REACTIONS (3)
  - Pneumonitis [Unknown]
  - Nausea [Unknown]
  - Fluid retention [Unknown]

NARRATIVE: CASE EVENT DATE: 20200221
